FAERS Safety Report 19099297 (Version 1)
Quarter: 2021Q2

REPORT INFORMATION
  Report Type: Spontaneous
  Country: US (occurrence: US)
  Receive Date: 20210406
  Receipt Date: 20210406
  Transmission Date: 20210717
  Serious: No
  Sender: FDA-Public Use
  Company Number: US-009507513-2103USA007709

PATIENT
  Age: 24 Year

DRUGS (4)
  1. CHLORHEXIDINE [Concomitant]
     Active Substance: CHLORHEXIDINE
  2. VORICONAZOLE. [Concomitant]
     Active Substance: VORICONAZOLE
     Route: 048
  3. NOXAFIL [Suspect]
     Active Substance: POSACONAZOLE
     Indication: ACANTHAMOEBA KERATITIS
     Route: 048
  4. POLIHEXANIDE [Concomitant]
     Active Substance: POLIHEXANIDE

REACTIONS (1)
  - Product use in unapproved indication [Unknown]
